FAERS Safety Report 9703803 (Version 1)
Quarter: 2013Q4

REPORT INFORMATION
  Report Type: Report from Study
  Country: GB (occurrence: GB)
  Receive Date: 20131122
  Receipt Date: 20131122
  Transmission Date: 20140711
  Serious: Yes (Other)
  Sender: FDA-Public Use
  Company Number: GB-ROCHE-1306784

PATIENT
  Sex: Male

DRUGS (2)
  1. RITUXIMAB [Suspect]
     Indication: RHEUMATOID ARTHRITIS
     Route: 065
     Dates: start: 20080808
  2. METHOTREXATE [Concomitant]
     Route: 065
     Dates: start: 20060814

REACTIONS (2)
  - Spinal compression fracture [Recovered/Resolved]
  - Hemiparesis [Recovered/Resolved]
